FAERS Safety Report 5954139-X (Version None)
Quarter: 2008Q4

REPORT INFORMATION
  Report Type: 
  Country: None (occurrence: None)
  Receive Date: 20081117
  Receipt Date: 20081113
  Transmission Date: 20090506
  Serious: Yes (Life-Threatening)
  Sender: FDA-Public Use
  Company Number: JP-JNJFOC-20081103373

PATIENT

DRUGS (4)
  1. ITRIZOLE [Suspect]
     Dosage: DAY 3 TO 12 DAYS
     Route: 041
  2. ITRIZOLE [Suspect]
     Indication: BRONCHOPULMONARY ASPERGILLOSIS ALLERGIC
     Dosage: 2 DAYS
     Route: 041
  3. ITRIZOLE [Suspect]
     Route: 048
  4. PIRETAZOL [Suspect]
     Indication: DRUG USE FOR UNKNOWN INDICATION
     Route: 065

REACTIONS (1)
  - LUNG DISORDER [None]
